FAERS Safety Report 5527648-5 (Version None)
Quarter: 2007Q4

REPORT INFORMATION
  Report Type: 
  Country: None (occurrence: None)
  Receive Date: 20071123
  Receipt Date: 20071108
  Transmission Date: 20080405
  Serious: Yes (Death, Hospitalization)
  Sender: FDA-Public Use
  Company Number: 2007BI020668

PATIENT
  Age: 76 Year
  Sex: Male

DRUGS (2)
  1. ZEVALIN [Suspect]
     Indication: NON-HODGKIN'S LYMPHOMA REFRACTORY
     Dosage: 0.4 MCI/KG; 1X; IV
     Route: 042
     Dates: start: 20060407, end: 20060407
  2. RITUXIMAB [Concomitant]

REACTIONS (2)
  - COLON NEOPLASM [None]
  - RECTAL CANCER [None]
